FAERS Safety Report 6596869-5 (Version None)
Quarter: 2010Q1

REPORT INFORMATION
  Report Type: 
  Country: None (occurrence: None)
  Receive Date: 20100222
  Receipt Date: 20100222
  Transmission Date: 20100710
  Serious: Yes (Hospitalization, Other)
  Sender: FDA-Public Use
  Company Number: None

PATIENT
  Age: 60 Year
  Sex: Female
  Weight: 50 kg

DRUGS (4)
  1. LORAZEPAM [Suspect]
  2. LORAZEPAM [Concomitant]
  3. OLANZAPINE [Concomitant]
  4. CLONAZEPAM [Concomitant]

REACTIONS (23)
  - ABNORMAL BEHAVIOUR [None]
  - AGITATION [None]
  - AGORAPHOBIA [None]
  - ANXIETY [None]
  - DENTAL CARIES [None]
  - DRUG ABUSE [None]
  - DRUG DEPENDENCE [None]
  - DRUG INTERACTION [None]
  - DRUG TOLERANCE [None]
  - DRUG WITHDRAWAL SYNDROME [None]
  - DYSARTHRIA [None]
  - FEELING ABNORMAL [None]
  - GASTROINTESTINAL DISORDER [None]
  - HYPOGLYCAEMIA [None]
  - INSOMNIA [None]
  - NERVOUS SYSTEM DISORDER [None]
  - OBSESSIVE-COMPULSIVE DISORDER [None]
  - OSTEOPOROSIS [None]
  - PANIC ATTACK [None]
  - SCREAMING [None]
  - SOCIAL PROBLEM [None]
  - TOOTH DISORDER [None]
  - TOOTH EROSION [None]
